FAERS Safety Report 9699958 (Version 2)
Quarter: 2013Q4

REPORT INFORMATION
  Report Type: Spontaneous
  Country: JP (occurrence: JP)
  Receive Date: 20131121
  Receipt Date: 20131205
  Transmission Date: 20140711
  Serious: Yes (Other)
  Sender: FDA-Public Use
  Company Number: JP-ROCHE-1306578

PATIENT
  Age: 28 Year
  Sex: Female
  Weight: 55.07 kg

DRUGS (5)
  1. XOLAIR [Suspect]
     Indication: ASTHMA
     Route: 058
     Dates: start: 201307
  2. XOLAIR [Suspect]
     Dosage: FIFTH SHOT
     Route: 058
     Dates: start: 20131108
  3. XOLAIR [Suspect]
     Dosage: SIXTH SHOT
     Route: 058
     Dates: start: 201311, end: 201311
  4. XOLAIR [Suspect]
     Dosage: THIRD SHOT
     Route: 058
  5. XOLAIR [Suspect]
     Route: 058

REACTIONS (4)
  - Hypersensitivity [Recovered/Resolved]
  - Abdominal pain [Recovered/Resolved]
  - Rectal spasm [Recovered/Resolved]
  - Dysstasia [Unknown]
